FAERS Safety Report 6095157-3 (Version None)
Quarter: 2009Q1

REPORT INFORMATION
  Report Type: 
  Country: None (occurrence: None)
  Receive Date: 20090227
  Receipt Date: 20080222
  Transmission Date: 20090719
  Serious: No
  Sender: FDA-Public Use
  Company Number: A0706671A

PATIENT
  Age: 23 Year
  Sex: Female
  Weight: 67.7 kg

DRUGS (2)
  1. LAMICTAL [Suspect]
     Indication: BIPOLAR DISORDER
     Dosage: 100MG TWICE PER DAY
     Route: 048
  2. LEXAPRO [Concomitant]

REACTIONS (1)
  - URINARY INCONTINENCE [None]
